FAERS Safety Report 8916938 (Version 1)
Quarter: 2012Q4

REPORT INFORMATION
  Report Type: 
  Country: US (occurrence: US)
  Receive Date: 20121120
  Receipt Date: 20121120
  Transmission Date: 20130627
  Serious: Yes (Hospitalization)
  Sender: FDA-Public Use
  Company Number: US-B.I. PHARMACEUTICALS,INC./RIDGEFIELD-2012-BI-00757BP

PATIENT
  Age: 54 None
  Sex: Female

DRUGS (6)
  1. SPIRIVA [Suspect]
     Indication: CHRONIC OBSTRUCTIVE PULMONARY DISEASE
     Dosage: 18 mcg
     Route: 055
     Dates: start: 2010
  2. ADVAIR [Concomitant]
     Indication: CHRONIC OBSTRUCTIVE PULMONARY DISEASE
     Dosage: 2 puf
     Route: 055
     Dates: start: 2007
  3. PROAIR [Concomitant]
     Indication: CHRONIC OBSTRUCTIVE PULMONARY DISEASE
     Dosage: 4 puf
     Dates: start: 201203
  4. ALBUTEROL [Concomitant]
     Indication: CHRONIC OBSTRUCTIVE PULMONARY DISEASE
     Route: 055
  5. CLONAZEPAM [Concomitant]
     Indication: PANIC ATTACK
     Dosage: 1 mg
     Route: 048
     Dates: start: 200908
  6. TRAMADOL HCL [Concomitant]
     Indication: FIBROMYALGIA
     Dosage: 200 mg
     Route: 048
     Dates: start: 1995

REACTIONS (2)
  - Loss of consciousness [Recovered/Resolved]
  - Oedema peripheral [Not Recovered/Not Resolved]
